FAERS Safety Report 8383031-9 (Version None)
Quarter: 2012Q2

REPORT INFORMATION
  Report Type: 
  Country: None (occurrence: None)
  Receive Date: 20120524
  Receipt Date: 20120517
  Transmission Date: 20120825
  Serious: Yes (Hospitalization, Other)
  Sender: FDA-Public Use
  Company Number: PHHY2012JP042812

PATIENT
  Age: 60 Year
  Sex: Male

DRUGS (7)
  1. QUETIAPINE FUMARATE [Concomitant]
     Dosage: 50 MG, UNK
     Route: 048
  2. QUETIAPINE FUMARATE [Concomitant]
     Dosage: 200 MG, UNK
     Route: 048
  3. METHYLPHENIDATE [Suspect]
     Indication: SOMNOLENCE
     Dosage: 40 MG, DAILY
     Route: 048
  4. CARBIDOPA + LEVODOPA [Concomitant]
     Indication: PARKINSON'S DISEASE
     Route: 048
  5. CLONAZEPAM [Concomitant]
     Route: 048
  6. CABERGOLINE [Concomitant]
     Indication: PARKINSON'S DISEASE
     Route: 048
  7. AMANTADINE HCL [Suspect]
     Indication: PARKINSON'S DISEASE
     Dosage: 150 MG, DAILY
     Route: 048

REACTIONS (4)
  - HALLUCINATION, AUDITORY [None]
  - HALLUCINATION, VISUAL [None]
  - PERSECUTORY DELUSION [None]
  - PSYCHOTIC DISORDER [None]
